FAERS Safety Report 7473084-4 (Version None)
Quarter: 2011Q2

REPORT INFORMATION
  Report Type: 
  Country: None (occurrence: None)
  Receive Date: 20110511
  Receipt Date: 20110428
  Transmission Date: 20111010
  Serious: Yes (Hospitalization)
  Sender: FDA-Public Use
  Company Number: US-ROCHE-775501

PATIENT
  Sex: Female

DRUGS (3)
  1. AVASTIN [Suspect]
     Route: 065
  2. LUCENTIS [Suspect]
     Dosage: 0.5 UNK, 1/MONTH
     Route: 065
     Dates: start: 20110325
  3. ASPIRIN [Concomitant]

REACTIONS (8)
  - DRUG INEFFECTIVE [None]
  - MALAISE [None]
  - HEADACHE [None]
  - EYE PAIN [None]
  - DIZZINESS [None]
  - SENSORY DISTURBANCE [None]
  - EYE IRRITATION [None]
  - CEREBROVASCULAR ACCIDENT [None]
